FAERS Safety Report 16403131 (Version 2)
Quarter: 2019Q3

REPORT INFORMATION
  Report Type: Report from Study
  Country: US (occurrence: US)
  Receive Date: 20190607
  Receipt Date: 20190701
  Transmission Date: 20191004
  Serious: Yes (Other)
  Sender: FDA-Public Use
  Company Number: PHEH2019US023302

PATIENT
  Sex: Male

DRUGS (1)
  1. ENTRESTO [Suspect]
     Active Substance: SACUBITRIL\VALSARTAN
     Indication: CARDIAC FAILURE
     Dosage: UNK UNK, BID
     Route: 048

REACTIONS (6)
  - Cardiac failure congestive [Unknown]
  - Weight decreased [Unknown]
  - Drug ineffective [Unknown]
  - Ejection fraction decreased [Unknown]
  - Cardiac flutter [Unknown]
  - Pollakiuria [Unknown]
